FAERS Safety Report 4753958-5 (Version None)
Quarter: 2005Q3

REPORT INFORMATION
  Report Type: 
  Country: None (occurrence: None)
  Receive Date: 20050826
  Receipt Date: 20050816
  Transmission Date: 20060218
  Serious: Yes (Other)
  Sender: FDA-Public Use
  Company Number: 2005117571

PATIENT
  Age: 76 Year
  Sex: Male
  Weight: 79.3795 kg

DRUGS (15)
  1. CELEBREX [Suspect]
     Indication: ARTHRITIS
     Dosage: 200 MG (200 MG, 1 IN 1 D)
  2. ALLOPURINOL [Concomitant]
  3. DIGOXIN [Concomitant]
  4. ENALAPRIL MALEATE [Concomitant]
  5. HYDROCHLOROTHIAZIDE [Concomitant]
  6. SYNTHROID [Concomitant]
  7. LOVASTATIN [Concomitant]
  8. NADOLOL [Concomitant]
  9. WARFARIN SODIUM [Concomitant]
  10. FLOMAX [Concomitant]
  11. ACETYLSALICYLIC ACID SRT [Concomitant]
  12. MULTIPLE VITAMINS (ASCORBIC ACID, ERGOCALCIFEROL, FOLIC ACID, RETINOL, [Concomitant]
  13. IRON (IRON) [Concomitant]
  14. TYLENOL [Concomitant]
  15. TYLENOL PM (DIPHENHYDRAMINE, PARACETAMOL) [Concomitant]

REACTIONS (3)
  - GASTROINTESTINAL DISORDER [None]
  - RADIATION INJURY [None]
  - RECTAL HAEMORRHAGE [None]
